FAERS Safety Report 12241773 (Version 1)
Quarter: 2016Q2

REPORT INFORMATION
  Report Type: Spontaneous
  Country: US (occurrence: US)
  Receive Date: 20160406
  Receipt Date: 20160406
  Transmission Date: 20160815
  Serious: No
  Sender: FDA-Public Use
  Company Number: US-009507513-1603USA009422

PATIENT
  Age: 54 Year
  Sex: Male

DRUGS (3)
  1. METFORMIN [Concomitant]
     Active Substance: METFORMIN HYDROCHLORIDE
     Indication: DIABETES MELLITUS
     Dosage: UNK
  2. REBETOL [Suspect]
     Active Substance: RIBAVIRIN
     Dosage: 600 MG, BID
     Route: 048
     Dates: start: 20160304
  3. ZEPATIER [Suspect]
     Active Substance: ELBASVIR\GRAZOPREVIR
     Indication: HEPATITIS C
     Dosage: ONE TABLET DAILY IN AM
     Route: 048
     Dates: start: 20160304

REACTIONS (15)
  - Neck pain [Unknown]
  - Constipation [Unknown]
  - Back pain [Unknown]
  - Dyspnoea [Unknown]
  - Ocular discomfort [Unknown]
  - Decreased appetite [Unknown]
  - Testicular disorder [Unknown]
  - Influenza [Unknown]
  - Nausea [Unknown]
  - Chills [Unknown]
  - Sleep apnoea syndrome [Unknown]
  - Vomiting [Unknown]
  - Burning sensation [Unknown]
  - Headache [Unknown]
  - Pyrexia [Unknown]

NARRATIVE: CASE EVENT DATE: 201603
